FAERS Safety Report 6528398-9 (Version None)
Quarter: 2010Q1

REPORT INFORMATION
  Report Type: 
  Country: None (occurrence: None)
  Receive Date: 20100106
  Receipt Date: 20100104
  Transmission Date: 20100710
  Serious: Yes (Disabling, Other)
  Sender: FDA-Public Use
  Company Number: A0817602A

PATIENT
  Sex: Female
  Weight: 81.8 kg

DRUGS (2)
  1. ADVAIR DISKUS 100/50 [Suspect]
     Indication: ALLERGY PROPHYLAXIS
     Dosage: 1PUFF TWICE PER DAY
     Route: 055
     Dates: start: 20030601, end: 20030801
  2. NASACORT [Concomitant]

REACTIONS (8)
  - CARPAL TUNNEL SYNDROME [None]
  - CERVICAL SPINAL STENOSIS [None]
  - CSF TEST ABNORMAL [None]
  - HYPOAESTHESIA [None]
  - INTERVERTEBRAL DISC PROTRUSION [None]
  - MOVEMENT DISORDER [None]
  - PARAESTHESIA [None]
  - SENSORY LOSS [None]
